FAERS Safety Report 12851690 (Version 1)
Quarter: 2016Q4

REPORT INFORMATION
  Report Type: Spontaneous
  Country: US (occurrence: US)
  Receive Date: 20161016
  Receipt Date: 20161016
  Transmission Date: 20170207
  Serious: No
  Sender: FDA-Public Use
  Company Number: US-009507513-1609USA011606

PATIENT
  Sex: Female

DRUGS (1)
  1. NEXPLANON [Suspect]
     Active Substance: ETONOGESTREL
     Dosage: ONE ROD / 3 YEARS
     Route: 059
     Dates: start: 2015

REACTIONS (3)
  - Obesity [Unknown]
  - Implant site pain [Unknown]
  - Complication associated with device [Unknown]
